FAERS Safety Report 5818024-6 (Version None)
Quarter: 2008Q3

REPORT INFORMATION
  Report Type: 
  Country: None (occurrence: None)
  Receive Date: 20080722
  Receipt Date: 20070806
  Transmission Date: 20090109
  Serious: Yes (Other)
  Sender: FDA-Public Use
  Company Number: US-BAYER-US-2007-029801

PATIENT
  Sex: Female

DRUGS (1)
  1. MAGNEVIST [Suspect]
     Indication: NUCLEAR MAGNETIC RESONANCE IMAGING
     Dosage: UNIT DOSE: 20 ML
     Route: 040
     Dates: start: 20041207, end: 20041207

REACTIONS (2)
  - HYPOTENSION [None]
  - NEPHROGENIC SYSTEMIC FIBROSIS [None]
